FAERS Safety Report 17263244 (Version 1)
Quarter: 2020Q1

REPORT INFORMATION
  Report Type: Spontaneous
  Country: US (occurrence: US)
  Receive Date: 20200111
  Receipt Date: 20200111
  Transmission Date: 20200409
  Serious: Yes (Disabling)
  Sender: FDA-Public Use
  Company Number: None

PATIENT
  Age: 63 Year
  Sex: Female
  Weight: 65.25 kg

DRUGS (4)
  1. AMOXICILLIN 500 MG CAPSULES [Suspect]
     Active Substance: AMOXICILLIN
     Indication: TOOTH INFECTION
     Dosage: ?          QUANTITY:36 CAPSULE(S);?
     Route: 048
     Dates: start: 20191128, end: 20191210
  2. TUMERIC [Concomitant]
     Active Substance: HERBALS\TURMERIC
  3. MULTIVITAMIN GUMMY [Concomitant]
  4. CALCIUM [Concomitant]
     Active Substance: CALCIUM

REACTIONS (9)
  - Visual impairment [None]
  - Dehydration [None]
  - Headache [None]
  - Dysgeusia [None]
  - Asthenia [None]
  - Head discomfort [None]
  - Influenza like illness [None]
  - Decreased appetite [None]
  - Dysstasia [None]

NARRATIVE: CASE EVENT DATE: 20191128
